FAERS Safety Report 6191488-7 (Version None)
Quarter: 2009Q2

REPORT INFORMATION
  Report Type: 
  Country: None (occurrence: None)
  Receive Date: 20090515
  Receipt Date: 20090507
  Transmission Date: 20091009
  Serious: Yes (Other)
  Sender: FDA-Public Use
  Company Number: CN-ASTRAZENECA-2009AP02963

PATIENT
  Age: 43 Year
  Sex: Female
  Weight: 56 kg

DRUGS (2)
  1. LIDOCAINE [Suspect]
  2. BUPIVACAINE [Concomitant]
     Indication: ANAESTHESIA
     Route: 008

REACTIONS (4)
  - BLOOD PRESSURE DECREASED [None]
  - MUSCLE DISORDER [None]
  - MUSCLE TWITCHING [None]
  - TRISMUS [None]
